FAERS Safety Report 23580053 (Version 1)
Quarter: 2024Q1

REPORT INFORMATION
  Report Type: Spontaneous
  Country: CA (occurrence: None)
  Receive Date: 20240229
  Receipt Date: 20240229
  Transmission Date: 20240409
  Serious: Yes (Other)
  Sender: FDA-Public Use
  Company Number: CA-PFIZER INC-202400049306

PATIENT
  Age: 29 Year
  Sex: Female

DRUGS (9)
  1. METHOTREXATE [Suspect]
     Active Substance: METHOTREXATE
     Indication: Granulomatosis with polyangiitis
     Dates: start: 202211, end: 202303
  2. METHOTREXATE [Suspect]
     Active Substance: METHOTREXATE
     Dates: start: 20240221
  3. AZATHIOPRINE [Concomitant]
     Active Substance: AZATHIOPRINE
     Indication: Granulomatosis with polyangiitis
     Dates: start: 202310, end: 202312
  4. BACTRIM [Concomitant]
     Active Substance: SULFAMETHOXAZOLE\TRIMETHOPRIM
     Dosage: THREE TIMES PER WEEK MONDAY WEDNESDAY FRIDAY
  5. FOLIC ACID [Concomitant]
     Active Substance: FOLIC ACID
  6. HYDROXYCHLOROQUINE [Concomitant]
     Active Substance: HYDROXYCHLOROQUINE
     Indication: Granulomatosis with polyangiitis
     Dates: start: 202306, end: 202310
  7. CELLCEPT [Concomitant]
     Active Substance: MYCOPHENOLATE MOFETIL
     Indication: Granulomatosis with polyangiitis
     Dosage: 2 G (INTOLERANCE (AFTER 4 WEEKS) SALTY MOUTH EVERYTHING TASTED SALTY SORES IN MOUTH. SWOLLEN TONGUE)
     Dates: start: 202312, end: 202401
  8. PREDNISONE [Concomitant]
     Active Substance: PREDNISONE
     Indication: Granulomatosis with polyangiitis
     Dosage: TAPERING DOSE SLOWLY
     Dates: start: 202310
  9. SULFASALAZINE [Concomitant]
     Active Substance: SULFASALAZINE
     Indication: Granulomatosis with polyangiitis
     Dates: start: 202306, end: 202310

REACTIONS (4)
  - Nasal septal operation [Unknown]
  - Hysterectomy [Unknown]
  - Product use in unapproved indication [Unknown]
  - Mental disorder [Unknown]

NARRATIVE: CASE EVENT DATE: 20221101
